FAERS Safety Report 23251057 (Version 1)
Quarter: 2023Q4

REPORT INFORMATION
  Report Type: Spontaneous
  Country: US (occurrence: None)
  Receive Date: 20231201
  Receipt Date: 20231201
  Transmission Date: 20240110
  Serious: Yes (Hospitalization)
  Sender: FDA-Public Use
  Company Number: None

PATIENT
  Age: 42 Year
  Sex: Female
  Weight: 60.75 kg

DRUGS (3)
  1. TYRVAYA [Suspect]
     Active Substance: VARENICLINE TARTRATE
     Indication: Dry eye
     Dosage: FREQUENCY : TWICE A DAY;?OTHER ROUTE : SPRAYED INTO NOSTRIL, BUT NOT INHALED;?
     Route: 050
     Dates: start: 20231117, end: 20231124
  2. DOXYCYCLINE [Concomitant]
     Active Substance: DOXYCYCLINE
  3. ASPIRIN [Concomitant]
     Active Substance: ASPIRIN

REACTIONS (12)
  - Tremor [None]
  - Speech disorder [None]
  - Disturbance in attention [None]
  - Nightmare [None]
  - Dry mouth [None]
  - Anxiety [None]
  - Vomiting [None]
  - Blood pressure increased [None]
  - Transient ischaemic attack [None]
  - Brain fog [None]
  - Impaired driving ability [None]
  - Angiopathy [None]

NARRATIVE: CASE EVENT DATE: 20231125
